FAERS Safety Report 23529383 (Version 1)
Quarter: 2024Q1

REPORT INFORMATION
  Report Type: Spontaneous
  Country: US (occurrence: US)
  Receive Date: 20240216
  Receipt Date: 20240216
  Transmission Date: 20240410
  Serious: Yes (Other)
  Sender: FDA-Public Use
  Company Number: US-TOLMAR, INC.-24US046861

PATIENT
  Age: 19 Year
  Sex: Female

DRUGS (2)
  1. ELIGARD [Suspect]
     Active Substance: LEUPROLIDE ACETATE
     Indication: Menstrual cycle management
     Dosage: UNK
  2. ELIGARD [Suspect]
     Active Substance: LEUPROLIDE ACETATE
     Indication: Menstrual cycle management
     Dosage: UNK

REACTIONS (7)
  - Graft versus host disease in skin [Unknown]
  - Graft versus host disease in eye [Unknown]
  - Graft versus host disease oral [Unknown]
  - Graft versus host disease in gastrointestinal tract [Unknown]
  - Ovarian failure [Unknown]
  - Off label use [Unknown]
  - Hot flush [Unknown]
